FAERS Safety Report 6400902-0 (Version None)
Quarter: 2009Q4

REPORT INFORMATION
  Report Type: 
  Country: None (occurrence: None)
  Receive Date: 20091009
  Receipt Date: 20090924
  Transmission Date: 20100525
  Serious: Yes (Other)
  Sender: FDA-Public Use
  Company Number: 2009002927

PATIENT
  Age: 58 Year
  Sex: Male

DRUGS (4)
  1. TARCEVA [Suspect]
     Indication: NON-SMALL CELL LUNG CANCER
     Dosage: (150 MG,QD), ORAL
     Route: 048
     Dates: start: 20080730
  2. BEVACIZUMAB [Suspect]
     Indication: NON-SMALL CELL LUNG CANCER
     Dosage: (15 MG/KG,L IN 3 WK),INTRAVENOUS
     Route: 042
     Dates: start: 20080811
  3. ENALAPRIL MALEATE [Concomitant]
  4. NORVASC [Concomitant]

REACTIONS (1)
  - BLINDNESS UNILATERAL [None]
